FAERS Safety Report 6224621-9 (Version None)
Quarter: 2009Q2

REPORT INFORMATION
  Report Type: 
  Country: None (occurrence: None)
  Receive Date: 20090612
  Receipt Date: 20090323
  Transmission Date: 20091009
  Serious: No
  Sender: FDA-Public Use
  Company Number: US-ABBOTT-09P-163-0564206-00

PATIENT
  Sex: Female
  Weight: 54.48 kg

DRUGS (8)
  1. HUMIRA [Suspect]
     Indication: CROHN'S DISEASE
     Route: 058
     Dates: start: 20080501, end: 20080901
  2. HUMIRA [Suspect]
     Route: 058
     Dates: start: 20080901
  3. ENTOCORT EC [Suspect]
     Indication: CROHN'S DISEASE
     Dates: end: 20090304
  4. IMURAN [Concomitant]
     Indication: CROHN'S DISEASE
     Dosage: 100 MG
     Route: 048
  5. PENTASA [Concomitant]
     Indication: CROHN'S DISEASE
     Route: 048
  6. VITAMINS [Concomitant]
     Indication: VITAMIN SUPPLEMENTATION
  7. CALCIUM [Concomitant]
     Indication: MINERAL SUPPLEMENTATION
  8. PROBIOTICS [Concomitant]
     Indication: CROHN'S DISEASE

REACTIONS (2)
  - DRUG INEFFECTIVE [None]
  - PARAESTHESIA [None]
